FAERS Safety Report 14158319 (Version 3)
Quarter: 2017Q4

REPORT INFORMATION
  Report Type: Spontaneous
  Country: US (occurrence: US)
  Receive Date: 20171103
  Receipt Date: 20171220
  Transmission Date: 20180321
  Serious: Yes (Other)
  Sender: FDA-Public Use
  Company Number: US-PFIZER INC-2017471082

PATIENT
  Age: 48 Year
  Sex: Male

DRUGS (21)
  1. CEFTAZIDIME. [Concomitant]
     Active Substance: CEFTAZIDIME
     Indication: EYE SWELLING
     Dosage: UNK
     Route: 031
  2. CEFTAZIDIME. [Concomitant]
     Active Substance: CEFTAZIDIME
     Indication: ERYTHEMA OF EYELID
  3. SULFAMETHOXAZOLE W/TRIMETHOPRIM [Suspect]
     Active Substance: SULFAMETHOXAZOLE\TRIMETHOPRIM
     Dosage: UNK
  4. PREDNISONE. [Concomitant]
     Active Substance: PREDNISONE
     Indication: IMMUNOSUPPRESSANT DRUG THERAPY
     Dosage: UNK
  5. VANCOMYCIN [Concomitant]
     Active Substance: VANCOMYCIN
     Indication: ERYTHEMA OF EYELID
  6. FOSCARNET [Concomitant]
     Active Substance: FOSCARNET
     Indication: EYE SWELLING
     Dosage: UNK
     Route: 031
  7. SULFAMETHOXAZOLE/TRIMETHOPRIM [Suspect]
     Active Substance: SULFAMETHOXAZOLE\TRIMETHOPRIM
     Indication: NOCARDIOSIS
     Dosage: UNK
  8. VORICONAZOLE. [Concomitant]
     Active Substance: VORICONAZOLE
     Indication: EYE SWELLING
     Dosage: UNK
     Route: 031
  9. VORICONAZOLE. [Concomitant]
     Active Substance: VORICONAZOLE
     Indication: ERYTHEMA OF EYELID
  10. FOSCARNET [Concomitant]
     Active Substance: FOSCARNET
     Indication: ERYTHEMA OF EYELID
  11. AMOXYCILLIN/CLAVULANIC ACID [Concomitant]
     Active Substance: AMOXICILLIN\CLAVULANIC ACID
     Indication: NOCARDIOSIS
     Dosage: UNK
  12. SULFAMETHOXAZOLE W/TRIMETHOPRIM [Suspect]
     Active Substance: SULFAMETHOXAZOLE\TRIMETHOPRIM
     Indication: NOCARDIOSIS
     Dosage: 15 MG/KG, DAILY
     Route: 042
  13. VANCOMYCIN [Concomitant]
     Active Substance: VANCOMYCIN
     Indication: EYE SWELLING
     Dosage: UNK
     Route: 031
  14. AMIKACIN [Concomitant]
     Active Substance: AMIKACIN
     Indication: EYE SWELLING
     Dosage: UNK
     Route: 031
  15. AMIKACIN [Concomitant]
     Active Substance: AMIKACIN
     Indication: ERYTHEMA OF EYELID
  16. CEFTRIAXONE. [Concomitant]
     Active Substance: CEFTRIAXONE
     Indication: NOCARDIOSIS
     Dosage: UNK
  17. MOXIFLOXACIN. [Concomitant]
     Active Substance: MOXIFLOXACIN
     Indication: NOCARDIOSIS
     Dosage: UNK
  18. MINOCYCLINE [Concomitant]
     Active Substance: MINOCYCLINE\MINOCYCLINE HYDROCHLORIDE
     Indication: NOCARDIOSIS
     Dosage: UNK
  19. TACROLIMUS. [Concomitant]
     Active Substance: TACROLIMUS
     Indication: IMMUNOSUPPRESSANT DRUG THERAPY
     Dosage: UNK
  20. LEVOFLOXACIN. [Concomitant]
     Active Substance: LEVOFLOXACIN
     Indication: NOCARDIOSIS
     Dosage: UNK
  21. SULFAMETHOXAZOLE/TRIMETHOPRIM [Suspect]
     Active Substance: SULFAMETHOXAZOLE\TRIMETHOPRIM
     Dosage: TWO DOUBLE-STRENGTH (800 MG/160 MG)

REACTIONS (7)
  - Condition aggravated [Unknown]
  - Vomiting [Unknown]
  - Pancytopenia [Unknown]
  - Hypotension [Unknown]
  - Nausea [Unknown]
  - Acute kidney injury [Unknown]
  - Hyperkalaemia [Unknown]
